FAERS Safety Report 13861972 (Version 1)
Quarter: 2017Q3

REPORT INFORMATION
  Report Type: Other
  Country: GB (occurrence: LK)
  Receive Date: 20170811
  Receipt Date: 20170811
  Transmission Date: 20171127
  Serious: Yes (Life-Threatening, Hospitalization, Other)
  Sender: FDA-Public Use
  Company Number: LK-INTERNATIONAL MEDICATION SYSTEMS, LIMITED-2024535

PATIENT
  Age: 63 Year
  Sex: Female

DRUGS (8)
  1. MORPHINE SULFATE. [Suspect]
     Active Substance: MORPHINE SULFATE
     Route: 042
  2. FENTANYL. [Suspect]
     Active Substance: FENTANYL
     Route: 042
  3. ISOFLURANE. [Suspect]
     Active Substance: ISOFLURANE
     Route: 055
  4. NITROUS OXIDE. [Suspect]
     Active Substance: NITROUS OXIDE
  5. MORPHINE [Suspect]
     Active Substance: MORPHINE
     Route: 042
  6. PROPOFOL. [Suspect]
     Active Substance: PROPOFOL
     Route: 042
  7. ATRACURIUM BESYLATE. [Suspect]
     Active Substance: ATRACURIUM BESYLATE
     Route: 042
  8. OXYGEN. [Suspect]
     Active Substance: OXYGEN

REACTIONS (2)
  - Stress cardiomyopathy [Recovered/Resolved]
  - Cardiogenic shock [Recovered/Resolved]
